FAERS Safety Report 20771111 (Version 2)
Quarter: 2022Q2

REPORT INFORMATION
  Report Type: Spontaneous
  Country: US (occurrence: US)
  Receive Date: 20220429
  Receipt Date: 20220606
  Transmission Date: 20220720
  Serious: No
  Sender: FDA-Public Use
  Company Number: US-TEVA-2022-US-2025367

PATIENT
  Age: 36 Year
  Sex: Female

DRUGS (2)
  1. AJOVY [Suspect]
     Active Substance: FREMANEZUMAB-VFRM
     Dosage: TOOK FOR 2 DAYS
     Route: 065
  2. AJOVY [Suspect]
     Active Substance: FREMANEZUMAB-VFRM

REACTIONS (1)
  - Vision blurred [Unknown]
